FAERS Safety Report 7557013-0 (Version None)
Quarter: 2011Q2

REPORT INFORMATION
  Report Type: 
  Country: None (occurrence: None)
  Receive Date: 20110620
  Receipt Date: 20110615
  Transmission Date: 20111010
  Serious: Yes (Death, Hospitalization)
  Sender: FDA-Public Use
  Company Number: PHHY2011US33169

PATIENT
  Sex: Male

DRUGS (1)
  1. RECLAST [Suspect]
     Indication: SENILE OSTEOPOROSIS
     Dosage: 5 MG,
     Route: 042
     Dates: start: 20100512

REACTIONS (4)
  - DYSPNOEA EXERTIONAL [None]
  - FLUSHING [None]
  - DEATH [None]
  - CARDIAC DISORDER [None]
